FAERS Safety Report 7189999-0 (Version None)
Quarter: 2010Q4

REPORT INFORMATION
  Report Type: 
  Country: None (occurrence: None)
  Receive Date: 20101223
  Receipt Date: 20101209
  Transmission Date: 20110411
  Serious: Yes (Hospitalization)
  Sender: FDA-Public Use
  Company Number: JP-BAYER-201015739BYL

PATIENT
  Sex: Male
  Weight: 64 kg

DRUGS (11)
  1. NEXAVAR [Suspect]
     Route: 048
     Dates: start: 20100723, end: 20100726
  2. NEXAVAR [Suspect]
     Dosage: 400 MG (DAILY DOSE), , ORAL
     Route: 048
     Dates: start: 20100824, end: 20100903
  3. NEXAVAR [Suspect]
     Dosage: 200 MG (DAILY DOSE), , ORAL
     Route: 048
     Dates: start: 20100927, end: 20101019
  4. ALDACTONE [Concomitant]
     Dosage: 25 MG (DAILY DOSE), , ORAL
     Route: 048
  5. LASIX [Concomitant]
     Dosage: 20 MG (DAILY DOSE), , ORAL
     Route: 048
  6. KELNAC [Concomitant]
     Dosage: 160 MG (DAILY DOSE), , ORAL
     Route: 048
  7. URSO 250 [Concomitant]
     Dosage: 600 MG (DAILY DOSE), , ORAL
     Route: 048
  8. SHAKUYAKUKANZOUTOU [Concomitant]
     Dosage: 7.5 G (DAILY DOSE), , ORAL
     Route: 048
  9. GASTER D [Concomitant]
     Dosage: 20 MG (DAILY DOSE), , ORAL
     Route: 048
  10. KERATINAMIN [Concomitant]
     Route: 061
     Dates: start: 20100722
  11. DEPAS [Concomitant]
     Dosage: 0.5 MG (DAILY DOSE), , ORAL
     Route: 048

REACTIONS (3)
  - DECREASED APPETITE [None]
  - ENCEPHALOPATHY [None]
  - HYPERTENSION [None]
